FAERS Safety Report 24395986 (Version 3)
Quarter: 2025Q2

REPORT INFORMATION
  Report Type: Spontaneous
  Country: AU (occurrence: AU)
  Receive Date: 20241004
  Receipt Date: 20250612
  Transmission Date: 20250716
  Serious: Yes (Other)
  Sender: PFIZER
  Company Number: AU-ASTRAZENECA-202409GLO002234AU

PATIENT
  Age: 51 Year
  Sex: Male

DRUGS (60)
  1. PANTOPRAZOLE [Suspect]
     Active Substance: PANTOPRAZOLE
     Route: 065
  2. PANTOPRAZOLE [Suspect]
     Active Substance: PANTOPRAZOLE
     Route: 065
  3. VORICONAZOLE [Suspect]
     Active Substance: VORICONAZOLE
     Route: 065
  4. VORICONAZOLE [Suspect]
     Active Substance: VORICONAZOLE
     Route: 065
  5. VORICONAZOLE [Suspect]
     Active Substance: VORICONAZOLE
  6. COTRIMOXAZOLE [Suspect]
     Active Substance: SULFAMETHOXAZOLE\TRIMETHOPRIM
     Route: 065
  7. COTRIMOXAZOLE [Suspect]
     Active Substance: SULFAMETHOXAZOLE\TRIMETHOPRIM
     Route: 065
  8. COTRIMOXAZOLE [Suspect]
     Active Substance: SULFAMETHOXAZOLE\TRIMETHOPRIM
  9. CLINDAMYCIN PALMITATE HYDROCHLORIDE [Suspect]
     Active Substance: CLINDAMYCIN PALMITATE HYDROCHLORIDE
     Route: 065
  10. CLINDAMYCIN PALMITATE HYDROCHLORIDE [Suspect]
     Active Substance: CLINDAMYCIN PALMITATE HYDROCHLORIDE
     Route: 065
  11. CLINDAMYCIN PALMITATE HYDROCHLORIDE [Suspect]
     Active Substance: CLINDAMYCIN PALMITATE HYDROCHLORIDE
  12. CANDESARTAN CILEXETIL [Suspect]
     Active Substance: CANDESARTAN CILEXETIL
     Route: 048
  13. CANDESARTAN CILEXETIL [Suspect]
     Active Substance: CANDESARTAN CILEXETIL
     Route: 048
  14. CANDESARTAN CILEXETIL [Suspect]
     Active Substance: CANDESARTAN CILEXETIL
     Route: 048
  15. CANDESARTAN CILEXETIL [Suspect]
     Active Substance: CANDESARTAN CILEXETIL
     Route: 048
  16. AMLODIPINE BESYLATE [Suspect]
     Active Substance: AMLODIPINE BESYLATE
     Route: 065
  17. CARVEDILOL [Suspect]
     Active Substance: CARVEDILOL
     Route: 065
  18. CARVEDILOL [Suspect]
     Active Substance: CARVEDILOL
     Route: 065
  19. NITAZOXANIDE [Suspect]
     Active Substance: NITAZOXANIDE
     Route: 065
  20. NITAZOXANIDE [Suspect]
     Active Substance: NITAZOXANIDE
     Route: 065
  21. NITAZOXANIDE [Suspect]
     Active Substance: NITAZOXANIDE
  22. ALLOPURINOL [Suspect]
     Active Substance: ALLOPURINOL
     Route: 065
  23. ALLOPURINOL [Suspect]
     Active Substance: ALLOPURINOL
     Route: 065
  24. ALLOPURINOL [Suspect]
     Active Substance: ALLOPURINOL
     Route: 065
  25. ALLOPURINOL [Suspect]
     Active Substance: ALLOPURINOL
     Route: 065
  26. CALCITRIOL [Suspect]
     Active Substance: CALCITRIOL
     Route: 065
  27. CALCITRIOL [Suspect]
     Active Substance: CALCITRIOL
     Route: 065
  28. CALCITRIOL [Suspect]
     Active Substance: CALCITRIOL
  29. CEFTRIAXONE SODIUM [Suspect]
     Active Substance: CEFTRIAXONE SODIUM
     Route: 065
  30. CEFTRIAXONE SODIUM [Suspect]
     Active Substance: CEFTRIAXONE SODIUM
     Route: 065
  31. CEFTRIAXONE SODIUM [Suspect]
     Active Substance: CEFTRIAXONE SODIUM
  32. FUROSEMIDE [Suspect]
     Active Substance: FUROSEMIDE
     Route: 065
  33. FUROSEMIDE [Suspect]
     Active Substance: FUROSEMIDE
     Route: 065
  34. HYDRALAZINE HYDROCHLORIDE [Suspect]
     Active Substance: HYDRALAZINE HYDROCHLORIDE
     Route: 065
  35. HYDRALAZINE HYDROCHLORIDE [Suspect]
     Active Substance: HYDRALAZINE HYDROCHLORIDE
     Route: 065
  36. HYDRALAZINE HYDROCHLORIDE [Suspect]
     Active Substance: HYDRALAZINE HYDROCHLORIDE
  37. PRAVASTATIN SODIUM [Suspect]
     Active Substance: PRAVASTATIN SODIUM
     Route: 065
  38. PRAVASTATIN SODIUM [Suspect]
     Active Substance: PRAVASTATIN SODIUM
     Route: 065
  39. PRAVASTATIN SODIUM [Suspect]
     Active Substance: PRAVASTATIN SODIUM
  40. SULFAMETHOXAZOLE [Suspect]
     Active Substance: SULFAMETHOXAZOLE
     Route: 065
  41. SULFAMETHOXAZOLE [Suspect]
     Active Substance: SULFAMETHOXAZOLE
     Route: 065
  42. SULFAMETHOXAZOLE [Suspect]
     Active Substance: SULFAMETHOXAZOLE
  43. TACROLIMUS [Suspect]
     Active Substance: TACROLIMUS
     Route: 065
  44. TACROLIMUS [Suspect]
     Active Substance: TACROLIMUS
     Route: 065
  45. TACROLIMUS [Suspect]
     Active Substance: TACROLIMUS
  46. INSULIN ASPART [Suspect]
     Active Substance: INSULIN ASPART
     Route: 065
  47. INSULIN ASPART [Suspect]
     Active Substance: INSULIN ASPART
     Route: 065
  48. INSULIN ASPART [Suspect]
     Active Substance: INSULIN ASPART
  49. SEMAGLUTIDE [Suspect]
     Active Substance: SEMAGLUTIDE
     Route: 065
  50. SEMAGLUTIDE [Suspect]
     Active Substance: SEMAGLUTIDE
     Route: 065
  51. CHOLECALCIFEROL [Suspect]
     Active Substance: CHOLECALCIFEROL
     Route: 065
  52. CHOLECALCIFEROL [Suspect]
     Active Substance: CHOLECALCIFEROL
     Route: 065
  53. CHOLECALCIFEROL [Suspect]
     Active Substance: CHOLECALCIFEROL
  54. EVEROLIMUS [Suspect]
     Active Substance: EVEROLIMUS
     Route: 065
  55. EVEROLIMUS [Suspect]
     Active Substance: EVEROLIMUS
     Route: 065
  56. EVEROLIMUS [Suspect]
     Active Substance: EVEROLIMUS
     Route: 065
  57. EVEROLIMUS [Suspect]
     Active Substance: EVEROLIMUS
     Route: 065
  58. NICOTINAMIDE [Suspect]
     Active Substance: NIACINAMIDE
     Route: 065
  59. NICOTINAMIDE [Suspect]
     Active Substance: NIACINAMIDE
     Route: 065
  60. NICOTINAMIDE [Suspect]
     Active Substance: NIACINAMIDE

REACTIONS (8)
  - Pneumocystis jirovecii infection [Unknown]
  - Coma scale abnormal [Unknown]
  - Microsporidia infection [Unknown]
  - Disease progression [Unknown]
  - Therapeutic product effect incomplete [Unknown]
  - Chest pain [Unknown]
  - Diarrhoea [Unknown]
  - Dyspnoea [Unknown]
